FAERS Safety Report 6158783-9 (Version None)
Quarter: 2009Q2

REPORT INFORMATION
  Report Type: 
  Country: None (occurrence: None)
  Receive Date: 20090417
  Receipt Date: 20090415
  Transmission Date: 20091009
  Serious: Yes (Other)
  Sender: FDA-Public Use
  Company Number: D0061293A

PATIENT
  Sex: Female

DRUGS (1)
  1. ELONTRIL [Suspect]
     Indication: DEPRESSION
     Dosage: 150MG PER DAY
     Route: 048
     Dates: start: 20081001

REACTIONS (4)
  - ANOREXIA [None]
  - BLOOD PRESSURE INCREASED [None]
  - RESTLESSNESS [None]
  - VISUAL IMPAIRMENT [None]
